FAERS Safety Report 6000562-7 (Version None)
Quarter: 2008Q4

REPORT INFORMATION
  Report Type: 
  Country: None (occurrence: None)
  Receive Date: 20081215
  Receipt Date: 20081124
  Transmission Date: 20090506
  Serious: Yes (Other)
  Sender: FDA-Public Use
  Company Number: US-BAYER-200814839BCC

PATIENT
  Age: 71 Year
  Sex: Female
  Weight: 58 kg

DRUGS (9)
  1. ASPIRIN [Suspect]
     Indication: THROMBOSIS PROPHYLAXIS
     Dosage: UNIT DOSE: 81 MG
     Route: 048
     Dates: start: 20081017, end: 20081023
  2. B 50 COMPLEX [Concomitant]
  3. CAL-MAG CITRATE WITH VITAMIN D [Concomitant]
     Dosage: TOTAL DAILY DOSE: 2 DF
  4. Q ABSORB COQ10 [Concomitant]
  5. ALLEGRA [Concomitant]
  6. PREMARIN [Concomitant]
  7. KROGER ASPIRIN [Concomitant]
  8. CENTRUM MULTIVITAMIN [Concomitant]
  9. ESTER C [Concomitant]
     Dosage: TOTAL DAILY DOSE: 1000 MG

REACTIONS (8)
  - BLOOD PRESSURE INCREASED [None]
  - CARDIAC DISORDER [None]
  - DIZZINESS [None]
  - DYSPNOEA [None]
  - GASTRIC DISORDER [None]
  - MALAISE [None]
  - PALPITATIONS [None]
  - VERTIGO [None]
